FAERS Safety Report 12589683 (Version 1)
Quarter: 2016Q3

REPORT INFORMATION
  Report Type: Report from Study
  Country: ES (occurrence: ES)
  Receive Date: 20160725
  Receipt Date: 20160725
  Transmission Date: 20161109
  Serious: Yes (Other)
  Sender: FDA-Public Use
  Company Number: ES-CELGENEUS-ESP-2016073105

PATIENT
  Age: 81 Year
  Sex: Male

DRUGS (1)
  1. REVLIMID [Suspect]
     Active Substance: LENALIDOMIDE
     Indication: MYELODYSPLASTIC SYNDROME
     Route: 048
     Dates: start: 20150821, end: 20160217

REACTIONS (6)
  - Embolism [Unknown]
  - Neuropathy peripheral [Unknown]
  - Anaemia [Unknown]
  - Thrombocytopenia [Unknown]
  - Drug intolerance [Unknown]
  - Drug ineffective [Unknown]
